FAERS Safety Report 11344037 (Version 2)
Quarter: 2015Q3

REPORT INFORMATION
  Report Type: Spontaneous
  Country: AU (occurrence: AU)
  Receive Date: 20150806
  Receipt Date: 20150928
  Transmission Date: 20151125
  Serious: Yes (Death)
  Sender: FDA-Public Use
  Company Number: AU-SA-2015SA114020

PATIENT
  Age: 64 Year
  Sex: Female

DRUGS (3)
  1. STILNOX [Suspect]
     Active Substance: ZOLPIDEM TARTRATE
     Indication: INSOMNIA
     Dosage: 4 DOSAGE FORM ONCE AND HALF TABLET BEFORE RETURNING TO BED.
     Route: 065
     Dates: start: 20110901, end: 20110901
  2. CODEINE [Suspect]
     Active Substance: CODEINE
     Route: 065
  3. ALCOHOL. [Suspect]
     Active Substance: ALCOHOL
     Dosage: ONE AND HALF BOTTLES BEFORE DINNER
     Route: 065

REACTIONS (1)
  - Toxicity to various agents [Fatal]

NARRATIVE: CASE EVENT DATE: 20110901
